FAERS Safety Report 7452365-4 (Version None)
Quarter: 2011Q2

REPORT INFORMATION
  Report Type: 
  Country: None (occurrence: None)
  Receive Date: 20110502
  Receipt Date: 20110426
  Transmission Date: 20111010
  Serious: Yes (Hospitalization)
  Sender: FDA-Public Use
  Company Number: GB-US-EMD SERONO, INC.-7047975

PATIENT
  Sex: Female
  Weight: 58 kg

DRUGS (3)
  1. REBIF [Suspect]
     Indication: PRODUCT USED FOR UNKNOWN INDICATION
     Route: 058
     Dates: start: 19970101
  2. OXYBUTYNIN [Concomitant]
     Route: 048
     Dates: start: 20100101, end: 20110110
  3. ARCOXIA [Interacting]
     Indication: SURGERY
     Route: 048
     Dates: start: 20101215, end: 20110110

REACTIONS (6)
  - CONFUSIONAL STATE [None]
  - FACET JOINT SYNDROME [None]
  - HALLUCINATION [None]
  - ANGER [None]
  - SOMNOLENCE [None]
  - DRUG INTERACTION [None]
